FAERS Safety Report 25008908 (Version 12)
Quarter: 2025Q3

REPORT INFORMATION
  Report Type: Report from Study
  Country: CO (occurrence: CO)
  Receive Date: 20250225
  Receipt Date: 20250730
  Transmission Date: 20251021
  Serious: Yes (Hospitalization, Other)
  Sender: TAKEDA
  Company Number: CO-TAKEDA-2025TUS019502

PATIENT
  Age: 23 Year
  Sex: Male
  Weight: 46 kg

DRUGS (3)
  1. VEDOLIZUMAB [Suspect]
     Active Substance: VEDOLIZUMAB
     Indication: Colitis ulcerative
  2. MESALAMINE [Suspect]
     Active Substance: MESALAMINE
     Indication: Product used for unknown indication
  3. ESOMEPRAZOLE [Concomitant]
     Active Substance: ESOMEPRAZOLE

REACTIONS (13)
  - Musculoskeletal chest pain [Unknown]
  - Haematochezia [Recovering/Resolving]
  - Diarrhoea [Recovering/Resolving]
  - Diarrhoea haemorrhagic [Unknown]
  - Abdominal pain [Unknown]
  - Back pain [Unknown]
  - Treatment failure [Unknown]
  - Weight decreased [Unknown]
  - Body height increased [Unknown]
  - General physical health deterioration [Unknown]
  - Body height decreased [Unknown]
  - Weight increased [Unknown]
  - Heart rate increased [Unknown]

NARRATIVE: CASE EVENT DATE: 20250216
